FAERS Safety Report 9355039 (Version 1)
Quarter: 2013Q2

REPORT INFORMATION
  Report Type: Spontaneous
  Country: US (occurrence: US)
  Receive Date: 20130619
  Receipt Date: 20130619
  Transmission Date: 20140414
  Serious: No
  Sender: FDA-Public Use
  Company Number: US-ROXANE LABORATORIES, INC.-2013-RO-00968RO

PATIENT
  Sex: Male

DRUGS (2)
  1. METHADONE [Suspect]
     Indication: BACK PAIN
     Dosage: 10 MG
     Route: 048
  2. OXYCODONE [Concomitant]
     Indication: BACK PAIN
     Dosage: 40 MG
     Route: 048

REACTIONS (1)
  - Oedema peripheral [Not Recovered/Not Resolved]
